FAERS Safety Report 10402804 (Version 1)
Quarter: 2014Q3

REPORT INFORMATION
  Report Type: Spontaneous
  Country: US (occurrence: US)
  Receive Date: 20140822
  Receipt Date: 20140822
  Transmission Date: 20150326
  Serious: No
  Sender: FDA-Public Use
  Company Number: US-009507513-1408USA009338

PATIENT
  Sex: Female

DRUGS (2)
  1. COPPERTONE CLEARLY SHEER FOR BEACH AND POOL SPF 50 PLUS [Suspect]
     Active Substance: AVOBENZONE\HOMOSALATE\OCTISALATE\OCTOCRYLENE\OXYBENZONE
     Indication: PRODUCT USED FOR UNKNOWN INDICATION
     Dosage: UNK UNK, TID
     Route: 061
     Dates: start: 201408
  2. COPPERTONE CLEARLY SHEER FOR BEACH AND POOL SPF 30 [Suspect]
     Active Substance: AVOBENZONE\OCTOCRYLENE\OXYBENZONE
     Indication: PRODUCT USED FOR UNKNOWN INDICATION
     Dosage: UNK UNK, TID
     Route: 061
     Dates: start: 201408

REACTIONS (2)
  - Sunburn [Not Recovered/Not Resolved]
  - Pain of skin [Not Recovered/Not Resolved]

NARRATIVE: CASE EVENT DATE: 201408
